FAERS Safety Report 20880162 (Version 1)
Quarter: 2022Q2

REPORT INFORMATION
  Report Type: Spontaneous
  Country: US (occurrence: None)
  Receive Date: 20220526
  Receipt Date: 20220526
  Transmission Date: 20220721
  Serious: Yes (Life-Threatening, Hospitalization)
  Sender: FDA-Public Use
  Company Number: None

PATIENT
  Age: 26 Year
  Sex: Female
  Weight: 2326.93 kg

DRUGS (1)
  1. KYLEENA [Suspect]
     Active Substance: LEVONORGESTREL

REACTIONS (14)
  - Abdominal pain [None]
  - Hyperhidrosis [None]
  - Vomiting [None]
  - Diarrhoea [None]
  - Chest pain [None]
  - Salpingectomy [None]
  - Haemorrhage [None]
  - Deafness [None]
  - Blindness [None]
  - Headache [None]
  - Vaginal haemorrhage [None]
  - Dysuria [None]
  - Human chorionic gonadotropin increased [None]
  - Haemoperitoneum [None]

NARRATIVE: CASE EVENT DATE: 20220309
